FAERS Safety Report 21434870 (Version 12)
Quarter: 2023Q4

REPORT INFORMATION
  Report Type: Report from Study
  Country: MX (occurrence: MX)
  Receive Date: 20221010
  Receipt Date: 20231128
  Transmission Date: 20240110
  Serious: Yes (Other)
  Sender: FDA-Public Use
  Company Number: MX-NOVARTISPH-NVSC2022MX200385

PATIENT
  Sex: Female

DRUGS (2)
  1. KISQALI [Suspect]
     Active Substance: RIBOCICLIB
     Indication: Breast cancer
     Dosage: UNK
     Route: 048
  2. KISQALI [Suspect]
     Active Substance: RIBOCICLIB
     Dosage: UNK
     Route: 048

REACTIONS (37)
  - Monoplegia [Unknown]
  - Asthenia [Unknown]
  - Conjunctivitis [Unknown]
  - Eyelid disorder [Unknown]
  - Eye inflammation [Unknown]
  - Ocular hyperaemia [Unknown]
  - Photophobia [Unknown]
  - Metastases to bone [Unknown]
  - Decreased immune responsiveness [Unknown]
  - Pain in extremity [Unknown]
  - Fear [Unknown]
  - Crying [Unknown]
  - Feeling abnormal [Recovering/Resolving]
  - Muscular weakness [Unknown]
  - Mental disorder [Recovering/Resolving]
  - Weight decreased [Unknown]
  - Insomnia [Unknown]
  - Memory impairment [Unknown]
  - Disturbance in attention [Unknown]
  - Anxiety [Unknown]
  - Intrusive thoughts [Unknown]
  - Emotional disorder [Unknown]
  - Fatigue [Unknown]
  - Malaise [Unknown]
  - Weight increased [Unknown]
  - Stress [Unknown]
  - Frustration tolerance decreased [Unknown]
  - Restlessness [Unknown]
  - Depressed mood [Unknown]
  - Musculoskeletal stiffness [Unknown]
  - Bone disorder [Unknown]
  - Pain [Unknown]
  - Product dose omission issue [Unknown]
  - Decreased appetite [Unknown]
  - Mood swings [Unknown]
  - Feeling of despair [Unknown]
  - Laziness [Unknown]
